FAERS Safety Report 13313206 (Version 2)
Quarter: 2017Q1

REPORT INFORMATION
  Report Type: Spontaneous
  Country: CZ (occurrence: CZ)
  Receive Date: 20170309
  Receipt Date: 20170320
  Transmission Date: 20170428
  Serious: Yes (Hospitalization, Other)
  Sender: FDA-Public Use
  Company Number: CZ-GILEAD-2017-0261405

PATIENT
  Age: 67 Year
  Sex: Female
  Weight: 51 kg

DRUGS (5)
  1. RITUXIMAB [Concomitant]
     Active Substance: RITUXIMAB
     Dosage: UNK, 6 CYCLES
     Route: 065
     Dates: start: 20160201, end: 20170111
  2. ZYDELIG [Suspect]
     Active Substance: IDELALISIB
     Indication: B-CELL SMALL LYMPHOCYTIC LYMPHOMA
     Dosage: UNK
     Route: 065
     Dates: start: 20160201, end: 20170111
  3. BISEPTOL [Concomitant]
     Active Substance: SULFAMETHOXAZOLE\TRIMETHOPRIM
     Indication: ANTIFUNGAL PROPHYLAXIS
     Dosage: UNK UNK, QD
     Route: 048
     Dates: start: 20160201
  4. ZYDELIG [Suspect]
     Active Substance: IDELALISIB
     Indication: CHRONIC LYMPHOCYTIC LEUKAEMIA
  5. VALACICLOVIR [Concomitant]
     Active Substance: VALACYCLOVIR HYDROCHLORIDE
     Indication: ANTIVIRAL PROPHYLAXIS
     Dosage: UNK UNK, BID
     Route: 048
     Dates: start: 20160201

REACTIONS (5)
  - Gastroenteritis [Not Recovered/Not Resolved]
  - Electrolyte imbalance [Unknown]
  - Eosinophilic colitis [Not Recovered/Not Resolved]
  - Paraneoplastic dermatosis [Unknown]
  - Dehydration [Unknown]

NARRATIVE: CASE EVENT DATE: 20161021
